FAERS Safety Report 4682127-2 (Version None)
Quarter: 2005Q2

REPORT INFORMATION
  Report Type: 
  Country: None (occurrence: None)
  Receive Date: 20050602
  Receipt Date: 20050524
  Transmission Date: 20051028
  Serious: Yes (Life-Threatening, Hospitalization)
  Sender: FDA-Public Use
  Company Number: 2005-05-1537

PATIENT
  Age: 24 Year

DRUGS (1)
  1. NASONEX [Suspect]
     Dosage: 1 PUFF NASAL SPRAY

REACTIONS (1)
  - PNEUMOTHORAX [None]
